FAERS Safety Report 6538827-2 (Version None)
Quarter: 2010Q1

REPORT INFORMATION
  Report Type: 
  Country: None (occurrence: None)
  Receive Date: 20100112
  Receipt Date: 20091230
  Transmission Date: 20100710
  Serious: Yes (Life-Threatening, Hospitalization)
  Sender: FDA-Public Use
  Company Number: 2008AL005315

PATIENT
  Age: 23 Year
  Sex: Female

DRUGS (8)
  1. SERTRALINE HYDROCHLORIDE [Suspect]
  2. CLOZAPINE [Concomitant]
  3. HYOSCINE HBR HYT [Concomitant]
  4. AMOXICILLIN [Concomitant]
  5. CLOZAPINE [Concomitant]
  6. MOCLOBEMIDE [Concomitant]
  7. SULPRIDE [Concomitant]
  8. UNSPECIFIED ANTIBIOTICS [Concomitant]

REACTIONS (8)
  - ALANINE AMINOTRANSFERASE INCREASED [None]
  - CONDITION AGGRAVATED [None]
  - HAEMOGLOBIN DECREASED [None]
  - LIVER FUNCTION TEST ABNORMAL [None]
  - LOSS OF CONSCIOUSNESS [None]
  - MULTIPLE DRUG OVERDOSE [None]
  - VOMITING [None]
  - WEIGHT DECREASED [None]
